FAERS Safety Report 22824042 (Version 2)
Quarter: 2023Q4

REPORT INFORMATION
  Report Type: Spontaneous
  Country: ES (occurrence: ES)
  Receive Date: 20230815
  Receipt Date: 20231104
  Transmission Date: 20240110
  Serious: Yes (Life-Threatening, Hospitalization, Other)
  Sender: FDA-Public Use
  Company Number: US-Hikma Pharmaceuticals-US-H14001-23-00457

PATIENT
  Age: 65 Year
  Sex: Male
  Weight: 58 kg

DRUGS (84)
  1. OXALIPLATIN [Suspect]
     Active Substance: OXALIPLATIN
     Indication: Product used for unknown indication
     Dosage: 112 MILLIGRAM
     Route: 042
     Dates: start: 20220902, end: 20220902
  2. OXALIPLATIN [Suspect]
     Active Substance: OXALIPLATIN
     Dosage: 146 MILLIGRAM (SINGLE DOSE)
     Route: 065
     Dates: start: 20220902, end: 20220902
  3. OXALIPLATIN [Suspect]
     Active Substance: OXALIPLATIN
     Dosage: 146 MILLIGRAM (SINGLE DOSE)
     Route: 065
     Dates: start: 20220916, end: 20220916
  4. OXALIPLATIN [Suspect]
     Active Substance: OXALIPLATIN
     Dosage: 112 MILLIGRAM
     Route: 042
     Dates: start: 20220930, end: 20220930
  5. OXALIPLATIN [Suspect]
     Active Substance: OXALIPLATIN
     Dosage: 112 MILLIGRAM (SINGLE DOSE)
     Route: 065
     Dates: start: 20221028, end: 20221028
  6. OXALIPLATIN [Suspect]
     Active Substance: OXALIPLATIN
     Dosage: 112 MILLIGRAM (SINGLE DOSE)
     Route: 065
     Dates: start: 20221121, end: 20221121
  7. OXALIPLATIN [Suspect]
     Active Substance: OXALIPLATIN
     Dosage: 112 MILLIGRAM (SINGLE DOSE)
     Route: 065
     Dates: start: 20221205, end: 20221205
  8. OXALIPLATIN [Suspect]
     Active Substance: OXALIPLATIN
     Dosage: 112 MILLIGRAM (SINGLE DOSE)
     Route: 065
     Dates: start: 20230109, end: 20230109
  9. BEVACIZUMAB [Suspect]
     Active Substance: BEVACIZUMAB
     Indication: Colorectal cancer
     Dosage: 325 MILLIGRAM (SINGLE DOSE)
     Route: 065
     Dates: start: 20220902, end: 20220902
  10. BEVACIZUMAB [Suspect]
     Active Substance: BEVACIZUMAB
     Dosage: 325 MILLIGRAM (SINGLE DOSE)
     Route: 065
     Dates: start: 20220930, end: 20220930
  11. BEVACIZUMAB [Suspect]
     Active Substance: BEVACIZUMAB
     Dosage: 325 MILLIGRAM (SINGLE DOSE)
     Route: 065
     Dates: start: 20221028, end: 20221028
  12. BEVACIZUMAB [Suspect]
     Active Substance: BEVACIZUMAB
     Dosage: 325 MILLIGRAM (SINGLE DOSE)
     Route: 065
     Dates: start: 20221121, end: 20221121
  13. BEVACIZUMAB [Suspect]
     Active Substance: BEVACIZUMAB
     Dosage: 325 MILLIGRAM (SINGLE DOSE)
     Route: 065
     Dates: start: 20221205, end: 20221205
  14. BEVACIZUMAB [Suspect]
     Active Substance: BEVACIZUMAB
     Dosage: 325 MILLIGRAM (SINGLE DOSE)
     Route: 065
     Dates: start: 20230109, end: 20230109
  15. BEVACIZUMAB [Suspect]
     Active Substance: BEVACIZUMAB
     Dosage: 325 MILLIGRAM
     Route: 065
     Dates: start: 20230309, end: 20230309
  16. BEVACIZUMAB [Suspect]
     Active Substance: BEVACIZUMAB
     Dosage: 325 MILLIGRAM
     Route: 065
     Dates: start: 20230323, end: 20230323
  17. BEVACIZUMAB [Suspect]
     Active Substance: BEVACIZUMAB
     Dosage: 325 MILLIGRAM
     Route: 065
     Dates: start: 20230410
  18. BEVACIZUMAB [Suspect]
     Active Substance: BEVACIZUMAB
     Dosage: 325 MILLIGRAM
     Route: 065
     Dates: start: 20230424
  19. BEVACIZUMAB [Suspect]
     Active Substance: BEVACIZUMAB
     Dosage: 325 MILLIGRAM
     Route: 065
     Dates: start: 20230508
  20. BEVACIZUMAB [Suspect]
     Active Substance: BEVACIZUMAB
     Dosage: 325 MILLIGRAM
     Route: 065
     Dates: start: 20230522
  21. BEVACIZUMAB [Suspect]
     Active Substance: BEVACIZUMAB
     Dosage: 325 MILLIGRAM
     Route: 065
     Dates: start: 20230606
  22. BEVACIZUMAB [Suspect]
     Active Substance: BEVACIZUMAB
     Dosage: 325 MILLIGRAM (SINGLE DOSE)
     Route: 065
     Dates: start: 20230627, end: 20230627
  23. BEVACIZUMAB [Suspect]
     Active Substance: BEVACIZUMAB
     Dosage: 325 MILLIGRAM (SINGLE DOSE)
     Route: 065
     Dates: start: 20230711, end: 20230711
  24. BEVACIZUMAB [Suspect]
     Active Substance: BEVACIZUMAB
     Dosage: 325 MILLIGRAM (SINGLE DOSE)
     Route: 065
     Dates: start: 20230808, end: 20230808
  25. FLUOROURACIL [Suspect]
     Active Substance: FLUOROURACIL
     Indication: Colorectal cancer
     Dosage: 688 MILLIGRAM
     Route: 042
     Dates: start: 20220902
  26. FLUOROURACIL [Suspect]
     Active Substance: FLUOROURACIL
     Dosage: 4128 MILLIGRAM
     Route: 042
     Dates: start: 20220902
  27. FLUOROURACIL [Suspect]
     Active Substance: FLUOROURACIL
     Dosage: 3302 MILLIGRAM
     Route: 042
     Dates: start: 20220930
  28. FLUOROURACIL [Suspect]
     Active Substance: FLUOROURACIL
     Dosage: 55 MILLIGRAM
     Route: 042
     Dates: start: 20220930
  29. FLUOROURACIL [Suspect]
     Active Substance: FLUOROURACIL
     Dosage: 3302 MILLIGRAM
     Route: 042
     Dates: start: 20230223
  30. FLUOROURACIL [Suspect]
     Active Substance: FLUOROURACIL
     Dosage: 550 MILLIGRAM
     Route: 042
     Dates: start: 20230223
  31. FLUOROURACIL [Suspect]
     Active Substance: FLUOROURACIL
     Dosage: 550 MILLIGRAM
     Route: 042
     Dates: start: 20230309
  32. FLUOROURACIL [Suspect]
     Active Substance: FLUOROURACIL
     Dosage: 3302 MILLIGRAM
     Route: 042
     Dates: start: 20230309
  33. FLUOROURACIL [Suspect]
     Active Substance: FLUOROURACIL
     Dosage: 550 MILLIGRAM
     Route: 042
     Dates: start: 20230323
  34. FLUOROURACIL [Suspect]
     Active Substance: FLUOROURACIL
     Dosage: 3302 MILLIGRAM
     Route: 042
     Dates: start: 20230323
  35. FLUOROURACIL [Suspect]
     Active Substance: FLUOROURACIL
     Dosage: 3302 MILLIGRAM
     Route: 042
     Dates: start: 20230410
  36. FLUOROURACIL [Suspect]
     Active Substance: FLUOROURACIL
     Dosage: 550 MILLIGRAM
     Route: 042
     Dates: start: 20230410
  37. FLUOROURACIL [Suspect]
     Active Substance: FLUOROURACIL
     Dosage: 3302 MILLIGRAM
     Route: 042
     Dates: start: 20230424
  38. FLUOROURACIL [Suspect]
     Active Substance: FLUOROURACIL
     Dosage: 550 MILLIGRAM
     Route: 042
     Dates: start: 20230424
  39. FLUOROURACIL [Suspect]
     Active Substance: FLUOROURACIL
     Dosage: 550 MILLIGRAM
     Route: 042
     Dates: start: 20230508
  40. FLUOROURACIL [Suspect]
     Active Substance: FLUOROURACIL
     Dosage: 3302 MILLIGRAM
     Route: 042
     Dates: start: 20230508
  41. FLUOROURACIL [Suspect]
     Active Substance: FLUOROURACIL
     Dosage: 550 MILLIGRAM
     Route: 042
     Dates: start: 20230522
  42. FLUOROURACIL [Suspect]
     Active Substance: FLUOROURACIL
     Dosage: 3302 MILLIGRAM
     Route: 042
     Dates: start: 20230522
  43. FLUOROURACIL [Suspect]
     Active Substance: FLUOROURACIL
     Dosage: 3302 MILLIGRAM
     Route: 042
     Dates: start: 20230606
  44. FLUOROURACIL [Suspect]
     Active Substance: FLUOROURACIL
     Dosage: 550 MILLIGRAM
     Route: 042
     Dates: start: 20230606
  45. FLUOROURACIL [Suspect]
     Active Substance: FLUOROURACIL
     Dosage: 550 MILLIGRAM
     Route: 065
     Dates: start: 20230627, end: 20230627
  46. FLUOROURACIL [Suspect]
     Active Substance: FLUOROURACIL
     Dosage: 3302 MILLIGRAM
     Route: 065
     Dates: start: 20230627, end: 20230627
  47. FLUOROURACIL [Suspect]
     Active Substance: FLUOROURACIL
     Dosage: 550 MILLIGRAM
     Route: 065
     Dates: start: 20230711, end: 20230711
  48. FLUOROURACIL [Suspect]
     Active Substance: FLUOROURACIL
     Dosage: 3187 MILLIGRAM
     Route: 065
     Dates: start: 20230727, end: 20230727
  49. FLUOROURACIL [Suspect]
     Active Substance: FLUOROURACIL
     Dosage: 531 MILLIGRAM
     Route: 065
     Dates: start: 20230808, end: 20230808
  50. FLUOROURACIL [Suspect]
     Active Substance: FLUOROURACIL
     Dosage: 3187 MILLIGRAM
     Route: 065
     Dates: start: 20230808, end: 20230808
  51. LEUCOVORIN [Suspect]
     Active Substance: LEUCOVORIN\LEUCOVORIN CALCIUM
     Indication: Product used for unknown indication
     Dosage: 400 MILLIGRAM
     Route: 042
     Dates: start: 20220902
  52. LEUCOVORIN [Suspect]
     Active Substance: LEUCOVORIN\LEUCOVORIN CALCIUM
     Dosage: 400 MILLIGRAM
     Route: 042
     Dates: start: 20220930
  53. LEUCOVORIN [Suspect]
     Active Substance: LEUCOVORIN\LEUCOVORIN CALCIUM
     Dosage: 99 MILLIGRAM
     Route: 042
     Dates: start: 20230223
  54. LEUCOVORIN [Suspect]
     Active Substance: LEUCOVORIN\LEUCOVORIN CALCIUM
     Dosage: 99 MILLIGRAM
     Route: 042
     Dates: start: 20230309
  55. LEUCOVORIN [Suspect]
     Active Substance: LEUCOVORIN\LEUCOVORIN CALCIUM
     Dosage: 99 MILLIGRAM
     Route: 042
     Dates: start: 20230323
  56. LEUCOVORIN [Suspect]
     Active Substance: LEUCOVORIN\LEUCOVORIN CALCIUM
     Dosage: 99 MILLIGRAM
     Route: 042
     Dates: start: 20230410
  57. LEUCOVORIN [Suspect]
     Active Substance: LEUCOVORIN\LEUCOVORIN CALCIUM
     Dosage: 99 MILLIGRAM
     Route: 042
     Dates: start: 20230424
  58. LEUCOVORIN [Suspect]
     Active Substance: LEUCOVORIN\LEUCOVORIN CALCIUM
     Dosage: 99 MILLIGRAM
     Route: 042
     Dates: start: 20230508
  59. LEUCOVORIN [Suspect]
     Active Substance: LEUCOVORIN\LEUCOVORIN CALCIUM
     Dosage: 99 MILLIGRAM
     Route: 042
     Dates: start: 20230522
  60. LEUCOVORIN [Suspect]
     Active Substance: LEUCOVORIN\LEUCOVORIN CALCIUM
     Dosage: 99 MILLIGRAM
     Route: 042
     Dates: start: 20230606
  61. LEUCOVORIN [Suspect]
     Active Substance: LEUCOVORIN\LEUCOVORIN CALCIUM
     Dosage: 400 MILLIGRAM  (SINGLE DOSE)
     Route: 065
     Dates: start: 20230323, end: 20230323
  62. LEUCOVORIN [Suspect]
     Active Substance: LEUCOVORIN\LEUCOVORIN CALCIUM
     Dosage: 400 MILLIGRAM  (SINGLE DOSE)
     Route: 065
     Dates: start: 20230410, end: 20230410
  63. LEUCOVORIN [Suspect]
     Active Substance: LEUCOVORIN\LEUCOVORIN CALCIUM
     Dosage: 400 MILLIGRAM  (SINGLE DOSE)
     Route: 065
     Dates: start: 20230508, end: 20230508
  64. LEUCOVORIN [Suspect]
     Active Substance: LEUCOVORIN\LEUCOVORIN CALCIUM
     Dosage: 99 MILLIGRAM (SINGLE DOSE)
     Route: 065
     Dates: start: 20230522, end: 20230522
  65. LEUCOVORIN [Suspect]
     Active Substance: LEUCOVORIN\LEUCOVORIN CALCIUM
     Dosage: 400 MILLIGRAM  (SINGLE DOSE)
     Route: 065
     Dates: start: 20230627, end: 20230627
  66. LEUCOVORIN [Suspect]
     Active Substance: LEUCOVORIN\LEUCOVORIN CALCIUM
     Dosage: 400 MILLIGRAM  (SINGLE DOSE)
     Route: 065
     Dates: start: 20230711, end: 20230711
  67. LEUCOVORIN [Suspect]
     Active Substance: LEUCOVORIN\LEUCOVORIN CALCIUM
     Dosage: 99 MILLIGRAM (SINGLE DOSE)
     Route: 065
     Dates: start: 20230808, end: 20230808
  68. ZIMBERELIMAB [Suspect]
     Active Substance: ZIMBERELIMAB
     Indication: Colorectal cancer
     Dosage: 400 MILLIGRAM
     Route: 042
     Dates: start: 20220902, end: 20220902
  69. ZIMBERELIMAB [Suspect]
     Active Substance: ZIMBERELIMAB
     Dosage: 400 MILLIGRAM
     Route: 042
     Dates: start: 20220930, end: 20220930
  70. ZIMBERELIMAB [Suspect]
     Active Substance: ZIMBERELIMAB
     Dosage: 480 MILLIGRAM (SINGLE DOSE)
     Route: 065
     Dates: start: 20221028, end: 20221028
  71. ZIMBERELIMAB [Suspect]
     Active Substance: ZIMBERELIMAB
     Dosage: 480 MILLIGRAM (SINGLE DOSE)
     Route: 042
     Dates: start: 20221205, end: 20221205
  72. ZIMBERELIMAB [Suspect]
     Active Substance: ZIMBERELIMAB
     Dosage: 480 MILLIGRAM (SINGLE DOSE)
     Route: 065
     Dates: start: 20230123, end: 20230123
  73. ZIMBERELIMAB [Suspect]
     Active Substance: ZIMBERELIMAB
     Dosage: 480 MILLIGRAM (SINGLE DOSE)
     Route: 065
     Dates: start: 20230309, end: 20230309
  74. ZIMBERELIMAB [Suspect]
     Active Substance: ZIMBERELIMAB
     Dosage: 480 MILLIGRAM (SINGLE DOSE)
     Route: 065
     Dates: start: 20230410, end: 20230410
  75. ZIMBERELIMAB [Suspect]
     Active Substance: ZIMBERELIMAB
     Dosage: 480 MILLIGRAM (SINGLE DOSE)
     Route: 042
     Dates: start: 20230508, end: 20230508
  76. ZIMBERELIMAB [Suspect]
     Active Substance: ZIMBERELIMAB
     Dosage: 480 MILLIGRAM (SINGLE DOSE)
     Route: 065
     Dates: start: 20230606, end: 20230606
  77. ZIMBERELIMAB [Suspect]
     Active Substance: ZIMBERELIMAB
     Dosage: 480 MILLIGRAM (SINGLE DOSE)
     Route: 065
     Dates: start: 20230711, end: 20230711
  78. ZIMBERELIMAB [Suspect]
     Active Substance: ZIMBERELIMAB
     Dosage: 480 MILLIGRAM (SINGLE DOSE)
     Route: 065
     Dates: start: 20230808, end: 20230808
  79. ATENOLOL [Concomitant]
     Active Substance: ATENOLOL
     Indication: Product used for unknown indication
     Dosage: UNK
     Route: 065
     Dates: start: 20220909
  80. CAPTOPIRIL [Concomitant]
     Indication: Product used for unknown indication
     Dosage: UNK
     Route: 065
     Dates: start: 20230123
  81. ENALAPRIL [Concomitant]
     Active Substance: ENALAPRIL
     Indication: Product used for unknown indication
     Dosage: UNK
     Route: 065
     Dates: start: 20220909
  82. CHLORTHALIDONE [Concomitant]
     Active Substance: CHLORTHALIDONE
     Indication: Product used for unknown indication
     Dosage: UNK
     Route: 065
  83. POLYETHYLENE GLYCOL 3350 [Concomitant]
     Active Substance: POLYETHYLENE GLYCOL 3350
     Indication: Product used for unknown indication
     Dosage: UNK
     Route: 065
     Dates: start: 20220909
  84. OMEPRAZOLE [Concomitant]
     Active Substance: OMEPRAZOLE
     Indication: Product used for unknown indication
     Dosage: UNK
     Route: 065
     Dates: start: 20221222

REACTIONS (7)
  - Neutropenia [Recovered/Resolved]
  - Respiratory syncytial virus test positive [Unknown]
  - Respiratory tract infection [Unknown]
  - Oropharyngeal pain [Unknown]
  - Pyrexia [Unknown]
  - Rash [Unknown]
  - Asthenia [Unknown]

NARRATIVE: CASE EVENT DATE: 20221028
